FAERS Safety Report 8297758 (Version 3)
Quarter: 2013Q2

REPORT INFORMATION
  Report Type: Spontaneous
  Country: US (occurrence: None)
  Receive Date: 20111122
  Receipt Date: 20120703
  Transmission Date: 20140414
  Serious: Yes (Other)
  Sender: FDA-Public Use
  Company Number: PHHY2011US51986

PATIENT
  Age: 51 Year
  Sex: Female

DRUGS (1)
  1. GILENYA [Suspect]
     Indication: MULTIPLE SCLEROSIS
     Dosage: 0.5 MG, QD, ORAL
     Route: 048
     Dates: start: 201012

REACTIONS (8)
  - Lacrimation increased [None]
  - EYE SWELLING [None]
  - Lower respiratory tract infection [None]
  - Ocular hyperaemia [None]
  - Upper respiratory tract infection [None]
  - Conjunctivitis [None]
  - Back pain [None]
  - Pulmonary congestion [None]
